FAERS Safety Report 7527847-7 (Version None)
Quarter: 2011Q2

REPORT INFORMATION
  Report Type: 
  Country: None (occurrence: None)
  Receive Date: 20110531
  Receipt Date: 20110516
  Transmission Date: 20111010
  Serious: Yes (Death, Other)
  Sender: FDA-Public Use
  Company Number: US-2011-10309

PATIENT

DRUGS (11)
  1. GRANULOCYTE COLONY STIMULATING FACTOR (GRANULOCYTE COLONY STIMULATING [Concomitant]
  2. ACYCLOVIR [Concomitant]
  3. SULFAMETHOXAZOLE AND TRIMETHOPRIM (SULFAMETHOXAZOLE, TRIMETHOPRIM) [Concomitant]
  4. FLUDARA [Suspect]
     Indication: HAEMATOLOGICAL MALIGNANCY
     Dosage: 30 MG/M2, DAILY DOSE, IV DRIP
     Route: 041
  5. FLUDARA [Suspect]
     Indication: BONE MARROW TRANSPLANT
     Dosage: 30 MG/M2, DAILY DOSE, IV DRIP
     Route: 041
  6. CYCLOSOPRINE (CYCLOSPORIN) [Concomitant]
  7. METHOTREXATE [Concomitant]
  8. BUSULFEX [Suspect]
     Indication: HAEMATOLOGICAL MALIGNANCY
     Dosage: 0.8 MG/KG, Q12HR, IV DRIP
     Route: 041
  9. BUSULFEX [Suspect]
     Indication: BONE MARROW TRANSPLANT
     Dosage: 0.8 MG/KG, Q12HR, IV DRIP
     Route: 041
  10. POLYMYCIN B SULFATE [Concomitant]
  11. FLUCONAZOLE [Concomitant]

REACTIONS (4)
  - DISEASE PROGRESSION [None]
  - PULMONARY TOXICITY [None]
  - PNEUMONIA CYTOMEGALOVIRAL [None]
  - ENGRAFTMENT SYNDROME [None]
